FAERS Safety Report 9479077 (Version 3)
Quarter: 2014Q1

REPORT INFORMATION
  Report Type: Spontaneous
  Country: US (occurrence: US)
  Receive Date: 20130827
  Receipt Date: 20140122
  Transmission Date: 20141002
  Serious: Yes (Hospitalization)
  Sender: FDA-Public Use
  Company Number: US-GLAXOSMITHKLINE-A1001788A

PATIENT
  Age: 76 Year
  Sex: Male

DRUGS (1)
  1. AVANDIA [Suspect]
     Indication: DIABETES MELLITUS
     Route: 048

REACTIONS (6)
  - Balance disorder [Unknown]
  - Amnesia [Unknown]
  - Dysarthria [Unknown]
  - Hemiparesis [Unknown]
  - Cognitive disorder [Unknown]
  - Cerebrovascular accident [Unknown]
